FAERS Safety Report 8216987-5 (Version None)
Quarter: 2012Q1

REPORT INFORMATION
  Report Type: 
  Country: None (occurrence: None)
  Receive Date: 20120319
  Receipt Date: 20120308
  Transmission Date: 20120608
  Serious: Yes (Hospitalization)
  Sender: FDA-Public Use
  Company Number: US-BIOGENIDEC-2012BI008988

PATIENT
  Age: 54 Year
  Sex: Female

DRUGS (1)
  1. TYSABRI [Suspect]
     Indication: MULTIPLE SCLEROSIS
     Route: 042
     Dates: start: 20101018, end: 20120103

REACTIONS (6)
  - FALL [None]
  - HIP FRACTURE [None]
  - MULTIPLE SCLEROSIS RELAPSE [None]
  - IMPAIRED REASONING [None]
  - SPONDYLITIS [None]
  - MEMORY IMPAIRMENT [None]
